FAERS Safety Report 23513768 (Version 1)
Quarter: 2024Q1

REPORT INFORMATION
  Report Type: Spontaneous
  Country: US (occurrence: US)
  Receive Date: 20240212
  Receipt Date: 20240212
  Transmission Date: 20240410
  Serious: Yes (Other)
  Sender: FDA-Public Use
  Company Number: US-AMGEN-USASP2024024953

PATIENT
  Age: 34 Year
  Sex: Female

DRUGS (13)
  1. CORLANOR [Suspect]
     Active Substance: IVABRADINE HYDROCHLORIDE
     Indication: Sinus tachycardia
     Dosage: 2.5 MILLIGRAM, BID
     Route: 048
     Dates: start: 2017
  2. CORLANOR [Suspect]
     Active Substance: IVABRADINE HYDROCHLORIDE
     Indication: Autonomic nervous system imbalance
     Dosage: 5 MILLIGRAM, BID
     Route: 048
     Dates: start: 202308
  3. CORLANOR [Suspect]
     Active Substance: IVABRADINE HYDROCHLORIDE
     Indication: Off label use
  4. VITAMIN D [Concomitant]
     Active Substance: VITAMIN D NOS
     Dosage: 5000 INTERNATIONAL UNIT
  5. JWH-018 [Concomitant]
     Active Substance: JWH-018
     Dosage: 100 MILLIGRAM
  6. MAGNESIUM [Concomitant]
     Active Substance: MAGNESIUM
     Dosage: 400 MILLIGRAM
  7. CULTURELLE [Concomitant]
     Active Substance: LACTOBACILLUS RHAMNOSUS
     Dosage: UNK
  8. COENZYME Q10 [Concomitant]
     Active Substance: DIETARY SUPPLEMENT\UBIDECARENONE
     Dosage: 200 MILLIGRAM
  9. FISH OIL [Concomitant]
     Active Substance: FISH OIL
     Dosage: 1080 MILLIGRAM
  10. VITAMIN C [Concomitant]
     Active Substance: ASCORBIC ACID
     Dosage: 1000 MILLIGRAM
  11. VITAMINS [Concomitant]
     Active Substance: VITAMINS
     Dosage: UNK
  12. KLONOPIN [Concomitant]
     Active Substance: CLONAZEPAM
     Dosage: UNK UNK, QD (0.25)
  13. OMEPRAZOLE [Concomitant]
     Active Substance: OMEPRAZOLE
     Dosage: 20 MILLIGRAM

REACTIONS (4)
  - Atrial fibrillation [Not Recovered/Not Resolved]
  - COVID-19 [Not Recovered/Not Resolved]
  - Ventricular extrasystoles [Not Recovered/Not Resolved]
  - Off label use [Unknown]

NARRATIVE: CASE EVENT DATE: 20170101
